FAERS Safety Report 11868592 (Version 2)
Quarter: 2016Q1

REPORT INFORMATION
  Report Type: Spontaneous
  Country: GB (occurrence: GB)
  Receive Date: 20151225
  Receipt Date: 20160108
  Transmission Date: 20160526
  Serious: No
  Sender: FDA-Public Use
  Company Number: GB-AMGEN-GBRSP2015135509

PATIENT
  Age: 35 Year
  Sex: Female

DRUGS (1)
  1. ENBREL [Suspect]
     Active Substance: ETANERCEPT
     Indication: PSORIATIC ARTHROPATHY
     Dosage: 50 MG, WEEKLY
     Route: 065
     Dates: start: 20151201

REACTIONS (5)
  - Dry throat [Unknown]
  - Pain [Unknown]
  - Injection site erythema [Unknown]
  - Injection site reaction [Unknown]
  - Dry eye [Unknown]

NARRATIVE: CASE EVENT DATE: 201512
